FAERS Safety Report 23376479 (Version 2)
Quarter: 2024Q4

REPORT INFORMATION
  Report Type: Spontaneous
  Country: FR (occurrence: FR)
  Receive Date: 20240108
  Receipt Date: 20241124
  Transmission Date: 20250115
  Serious: Yes (Death)
  Sender: SANDOZ
  Company Number: None

PATIENT
  Age: 86 Year
  Sex: Male

DRUGS (2)
  1. CEFTAZIDIME [Suspect]
     Active Substance: CEFTAZIDIME
     Indication: Otitis externa
     Dosage: 6.000G QD
     Route: 042
     Dates: start: 20230620, end: 20230718
  2. CIPROFLOXACIN [Suspect]
     Active Substance: CIPROFLOXACIN
     Indication: Otitis externa
     Dosage: 1.500G QD
     Route: 048
     Dates: start: 20230620, end: 20230718

REACTIONS (6)
  - Confusional state [Fatal]
  - Acute respiratory failure [Fatal]
  - Acute kidney injury [Fatal]
  - Supraventricular tachycardia [Fatal]
  - Transcription medication error [Fatal]
  - Product prescribing error [Fatal]

NARRATIVE: CASE EVENT DATE: 20230620
